FAERS Safety Report 5271046-9 (Version None)
Quarter: 2007Q1

REPORT INFORMATION
  Report Type: 
  Country: None (occurrence: None)
  Receive Date: 20070321
  Receipt Date: 20070308
  Transmission Date: 20070707
  Serious: Yes (Other)
  Sender: FDA-Public Use
  Company Number: PHEH2007US02926

PATIENT
  Sex: Male

DRUGS (2)
  1. CLOZARIL [Suspect]
  2. LISINOPRIL [Suspect]

REACTIONS (3)
  - ARTHRALGIA [None]
  - EMBOLISM [None]
  - PAIN IN EXTREMITY [None]
